FAERS Safety Report 24578297 (Version 1)
Quarter: 2024Q4

REPORT INFORMATION
  Report Type: Report from Study
  Country: US (occurrence: US)
  Receive Date: 20241105
  Receipt Date: 20241105
  Transmission Date: 20250115
  Serious: Yes (Hospitalization)
  Sender: ABBVIE
  Company Number: US-ABBVIE-5983304

PATIENT
  Age: 63 Year
  Sex: Male

DRUGS (2)
  1. CREON [Suspect]
     Active Substance: PANCRELIPASE AMYLASE\PANCRELIPASE LIPASE\PANCRELIPASE PROTEASE
     Indication: Pancreatic failure
     Dosage: LAST ADMINISTRATION DATE: 2024
     Route: 048
     Dates: start: 20240820
  2. CREON [Suspect]
     Active Substance: PANCRELIPASE AMYLASE\PANCRELIPASE LIPASE\PANCRELIPASE PROTEASE
     Indication: Pancreatic failure
     Route: 048
     Dates: start: 20241007

REACTIONS (6)
  - COVID-19 [Unknown]
  - Diarrhoea [Recovering/Resolving]
  - Pancreatic pseudocyst [Not Recovered/Not Resolved]
  - Memory impairment [Not Recovered/Not Resolved]
  - Illness [Unknown]
  - Pancreatitis necrotising [Unknown]

NARRATIVE: CASE EVENT DATE: 20240101
